FAERS Safety Report 19502908 (Version 1)
Quarter: 2021Q3

REPORT INFORMATION
  Report Type: Spontaneous
  Country: US (occurrence: US)
  Receive Date: 20210707
  Receipt Date: 20210707
  Transmission Date: 20211014
  Serious: Yes (Death, Hospitalization)
  Sender: FDA-Public Use
  Company Number: US-PFIZER INC-2021762970

PATIENT
  Age: 76 Year
  Sex: Male

DRUGS (5)
  1. CYCLOPHOSPHAMIDE. [Concomitant]
     Active Substance: CYCLOPHOSPHAMIDE
     Indication: FOLLICULAR LYMPHOMA
     Dosage: UNK, CYCLIC
  2. DOXORUBICIN HCL [Concomitant]
     Active Substance: DOXORUBICIN HYDROCHLORIDE
     Indication: FOLLICULAR LYMPHOMA
     Dosage: UNK, CYCLIC
  3. PREDNISOLONE. [Concomitant]
     Active Substance: PREDNISOLONE
     Indication: FOLLICULAR LYMPHOMA
     Dosage: UNK, CYCLIC
  4. RITUXIMAB. [Suspect]
     Active Substance: RITUXIMAB
     Indication: FOLLICULAR LYMPHOMA
     Dosage: UNK
  5. VINCRISTINE SULFATE. [Concomitant]
     Active Substance: VINCRISTINE SULFATE
     Indication: FOLLICULAR LYMPHOMA
     Dosage: UNK, CYCLIC

REACTIONS (1)
  - Hyperammonaemia [Fatal]
